FAERS Safety Report 25807923 (Version 1)
Quarter: 2025Q3

REPORT INFORMATION
  Report Type: Spontaneous
  Country: KR (occurrence: KR)
  Receive Date: 20250916
  Receipt Date: 20250916
  Transmission Date: 20251020
  Serious: Yes (Other)
  Sender: Kenvue
  Company Number: KR-KENVUE-20250905530

PATIENT

DRUGS (1)
  1. TYLENOL 8HR [Suspect]
     Active Substance: ACETAMINOPHEN
     Indication: Hypopharyngeal cancer
     Dosage: 650 MILLIGRAM, ONCE A DAY (1 DAY)
     Route: 065
     Dates: start: 20220424, end: 20220425

REACTIONS (2)
  - Depressed level of consciousness [Recovered/Resolved]
  - Syncope [Recovered/Resolved]

NARRATIVE: CASE EVENT DATE: 20220502
